FAERS Safety Report 17137914 (Version 1)
Quarter: 2019Q4

REPORT INFORMATION
  Report Type: Spontaneous
  Country: US (occurrence: US)
  Receive Date: 20191120
  Receipt Date: 20191120
  Transmission Date: 20200122
  Serious: Yes (Other)
  Sender: FDA-Public Use
  Company Number: None

PATIENT
  Age: 62 Year
  Sex: Female
  Weight: 78.93 kg

DRUGS (2)
  1. GABAPENTIN 100MG [Suspect]
     Active Substance: GABAPENTIN
     Indication: FIBROMYALGIA
     Route: 048
     Dates: start: 20160519, end: 20160602
  2. GABAPENTIN 100MG [Suspect]
     Active Substance: GABAPENTIN
     Indication: CUTANEOUS LUPUS ERYTHEMATOSUS
     Route: 048
     Dates: start: 20160519, end: 20160602

REACTIONS (3)
  - Hyperhidrosis [None]
  - Nausea [None]
  - Bedridden [None]

NARRATIVE: CASE EVENT DATE: 20160519
